FAERS Safety Report 6611359-9 (Version None)
Quarter: 2010Q1

REPORT INFORMATION
  Report Type: 
  Country: None (occurrence: None)
  Receive Date: 20100303
  Receipt Date: 20100217
  Transmission Date: 20100710
  Serious: Yes (Other)
  Sender: FDA-Public Use
  Company Number: JP-BAYER-201010832BYL

PATIENT
  Age: 68 Year
  Sex: Female

DRUGS (4)
  1. FLUDARA [Suspect]
     Indication: CORD BLOOD TRANSPLANT THERAPY
     Dosage: HLA: FULL MATCHED
     Route: 065
     Dates: start: 20070101
  2. MELPHALAN [Concomitant]
     Indication: CORD BLOOD TRANSPLANT THERAPY
     Route: 065
     Dates: start: 20070101
  3. TACROLIMUS HYDRATE [Concomitant]
     Indication: PROPHYLAXIS AGAINST GRAFT VERSUS HOST DISEASE
     Route: 065
     Dates: start: 20070101
  4. CORTICOSTEROID [Concomitant]
     Indication: PROPHYLAXIS AGAINST GRAFT VERSUS HOST DISEASE
     Route: 065
     Dates: start: 20070101

REACTIONS (4)
  - ACUTE GRAFT VERSUS HOST DISEASE [None]
  - ENCEPHALOPATHY [None]
  - NEUROPATHY PERIPHERAL [None]
  - STAPHYLOCOCCAL SEPSIS [None]
